FAERS Safety Report 20496551 (Version 1)
Quarter: 2022Q1

REPORT INFORMATION
  Report Type: Spontaneous
  Country: BE (occurrence: BE)
  Receive Date: 20220221
  Receipt Date: 20220221
  Transmission Date: 20220423
  Serious: Yes (Other)
  Sender: FDA-Public Use
  Company Number: BE-LUPIN PHARMACEUTICALS INC.-2022-02057

PATIENT
  Age: 80 Year
  Sex: Female

DRUGS (10)
  1. MOXIFLOXACIN HYDROCHLORIDE [Suspect]
     Active Substance: MOXIFLOXACIN HYDROCHLORIDE
     Indication: Ulcerative keratitis
     Dosage: UNK, 5MG/ML, 2-HOURLY
     Route: 061
  2. VANCOMYCIN [Suspect]
     Active Substance: VANCOMYCIN
     Indication: Ulcerative keratitis
     Dosage: UNK, ANTERIOR CHAMBER WASHOUT
     Route: 061
  3. TOBRAMYCIN [Suspect]
     Active Substance: TOBRAMYCIN
     Indication: Ulcerative keratitis
     Dosage: UNK, 3 MG/ML, OINTMENT
     Route: 061
  4. CHLORAMPHENICOL [Suspect]
     Active Substance: CHLORAMPHENICOL
     Indication: Ulcerative keratitis
     Dosage: 0.5 %, HOURLY
     Route: 065
  5. AMIKACIN [Suspect]
     Active Substance: AMIKACIN
     Indication: Ulcerative keratitis
     Dosage: UNK, 40MG/ML
     Route: 061
  6. ACYCLOVIR [Concomitant]
     Active Substance: ACYCLOVIR
     Indication: Ophthalmic herpes simplex
     Dosage: 800 MG, TID
     Route: 065
  7. ACYCLOVIR [Concomitant]
     Active Substance: ACYCLOVIR
     Indication: Herpes ophthalmic
  8. DEXAMETHASONE [Concomitant]
     Active Substance: DEXAMETHASONE
     Indication: Product used for unknown indication
     Dosage: UNK
     Route: 065
  9. PREDNISOLONE ACETATE [Concomitant]
     Active Substance: PREDNISOLONE ACETATE
     Indication: Herpes ophthalmic
     Dosage: 10 MG/ML 5 TIMES A DAY
     Route: 065
  10. PREDNISOLONE ACETATE [Concomitant]
     Active Substance: PREDNISOLONE ACETATE
     Indication: Ophthalmic herpes simplex

REACTIONS (1)
  - Drug resistance [Unknown]
